FAERS Safety Report 24057933 (Version 2)
Quarter: 2024Q3

REPORT INFORMATION
  Report Type: Spontaneous
  Country: US (occurrence: None)
  Receive Date: 20240707
  Receipt Date: 20240905
  Transmission Date: 20241016
  Serious: No
  Sender: ASTRAZENECA
  Company Number: 2024A151092

PATIENT
  Sex: Female

DRUGS (1)
  1. SYMBICORT [Suspect]
     Active Substance: BUDESONIDE\FORMOTEROL FUMARATE DIHYDRATE
     Dosage: 160 UG , 160/4.5 MCG, 120 INHALATIONS UNKNOWN
     Route: 055
     Dates: start: 20220328

REACTIONS (2)
  - Confusional state [Unknown]
  - Device malfunction [Unknown]
